FAERS Safety Report 6358951-7 (Version None)
Quarter: 2009Q3

REPORT INFORMATION
  Report Type: 
  Country: None (occurrence: None)
  Receive Date: 20090914
  Receipt Date: 20090903
  Transmission Date: 20100115
  Serious: Yes (Death)
  Sender: FDA-Public Use
  Company Number: GXKR2009DE09884

PATIENT
  Age: 53 Year
  Sex: Male

DRUGS (2)
  1. DOXEPIN HCL [Suspect]
     Dosage: 4500 MG IN TOTAL, ORAL
     Route: 048
  2. ETHANOL (NGX) (ETHANOL) UNKNOWN [Suspect]

REACTIONS (5)
  - ALCOHOL USE [None]
  - COMPLETED SUICIDE [None]
  - DRUG INTERACTION [None]
  - INTENTIONAL OVERDOSE [None]
  - THERAPEUTIC AGENT TOXICITY [None]
